FAERS Safety Report 9155412 (Version 2)
Quarter: 2013Q2

REPORT INFORMATION
  Report Type: Spontaneous
  Country: SE (occurrence: SE)
  Receive Date: 20130311
  Receipt Date: 20130612
  Transmission Date: 20140414
  Serious: Yes (Other)
  Sender: FDA-Public Use
  Company Number: SE-ASTRAZENECA-2013SE13159

PATIENT
  Age: 40 Year
  Sex: Female
  Weight: 85 kg

DRUGS (1)
  1. MARCAIN SPINAL TUNG [Suspect]
     Indication: SPINAL ANAESTHESIA
     Dosage: 5 MG/ML, 2.75 ML
     Route: 037
     Dates: start: 20130225, end: 20130225

REACTIONS (2)
  - Paraesthesia [Recovered/Resolved]
  - Drug effect prolonged [Recovered/Resolved]
